FAERS Safety Report 22161354 (Version 1)
Quarter: 2023Q1

REPORT INFORMATION
  Report Type: Spontaneous
  Country: US (occurrence: US)
  Receive Date: 20230331
  Receipt Date: 20230331
  Transmission Date: 20230418
  Serious: Yes (Other)
  Sender: FDA-Public Use
  Company Number: US-SEBELA IRELAND LIMITED-2023SEB00015

PATIENT
  Age: 73 Year
  Sex: Male
  Weight: 95.238 kg

DRUGS (3)
  1. NAFTIN [Suspect]
     Active Substance: NAFTIFINE HYDROCHLORIDE
     Indication: Tinea pedis
     Dosage: UNK APPLIED ON BOTH FEET, 1X/DAY
     Route: 061
     Dates: start: 20230301, end: 20230307
  2. KERA-42 [Concomitant]
  3. CLINDAMYCIN HYDROCHLORIDE [Concomitant]
     Active Substance: CLINDAMYCIN HYDROCHLORIDE
     Dosage: UNK, 3X/DAY

REACTIONS (2)
  - Application site hypersensitivity [Recovered/Resolved]
  - Skin toxicity [Recovered/Resolved]

NARRATIVE: CASE EVENT DATE: 20230301
